FAERS Safety Report 4890838-9 (Version None)
Quarter: 2006Q1

REPORT INFORMATION
  Report Type: 
  Country: None (occurrence: None)
  Receive Date: 20060125
  Receipt Date: 20060113
  Transmission Date: 20060701
  Serious: Yes (Other)
  Sender: FDA-Public Use
  Company Number: SE-BRISTOL-MYERS SQUIBB COMPANY-13250832

PATIENT
  Age: 84 Year
  Sex: Male

DRUGS (5)
  1. HYDREA [Suspect]
     Indication: THROMBOCYTOPENIA
     Route: 048
     Dates: start: 20050101
  2. TROMBYL [Concomitant]
  3. SELOKEN [Concomitant]
  4. NITROLINGUAL [Concomitant]
  5. DUROFERON [Concomitant]

REACTIONS (2)
  - SKIN ULCER [None]
  - VASCULITIS [None]
